FAERS Safety Report 24339337 (Version 1)
Quarter: 2024Q3

REPORT INFORMATION
  Report Type: Spontaneous
  Country: US (occurrence: None)
  Receive Date: 20240918
  Receipt Date: 20240918
  Transmission Date: 20241017
  Serious: Yes (Disabling)
  Sender: Public
  Company Number: None

PATIENT
  Age: 17 Year
  Sex: Male
  Weight: 76.5 kg

DRUGS (1)
  1. LEXAPRO [Suspect]
     Active Substance: ESCITALOPRAM OXALATE
     Indication: Depression
     Dosage: OTHER QUANTITY : 1.5 CAPSULE(S);?FREQUENCY : AT BEDTIME;?
     Route: 048

REACTIONS (4)
  - Sexual dysfunction [None]
  - Genital hypoaesthesia [None]
  - Brain fog [None]
  - Anhedonia [None]

NARRATIVE: CASE EVENT DATE: 20200917
